FAERS Safety Report 4443101-4 (Version None)
Quarter: 2004Q3

REPORT INFORMATION
  Report Type: 
  Country: None (occurrence: None)
  Receive Date: 20040903
  Receipt Date: 20040628
  Transmission Date: 20050211
  Serious: Yes (Other)
  Sender: FDA-Public Use
  Company Number: 2004UW13370

PATIENT
  Age: 67 Year
  Sex: Female
  Weight: 86.1834 kg

DRUGS (4)
  1. CRESTOR [Suspect]
     Indication: BLOOD CHOLESTEROL INCREASED
     Dosage: 10 MG DAILY PO
     Route: 048
     Dates: start: 20040329
  2. LISINOPRIL [Concomitant]
  3. SYNTHROID [Concomitant]
  4. MAXZIDE [Concomitant]

REACTIONS (4)
  - ASTHENIA [None]
  - FALL [None]
  - PAIN IN EXTREMITY [None]
  - TENDON INJURY [None]
